FAERS Safety Report 14459518 (Version 1)
Quarter: 2018Q1

REPORT INFORMATION
  Report Type: Spontaneous
  Country: US (occurrence: US)
  Receive Date: 20180130
  Receipt Date: 20180130
  Transmission Date: 20180509
  Serious: Yes (Hospitalization, Other)
  Sender: FDA-Public Use
  Company Number: US-MYLANLABS-2018M1006366

PATIENT
  Age: 29 Year
  Sex: Female

DRUGS (1)
  1. NITROFURANTOIN. [Suspect]
     Active Substance: NITROFURANTOIN
     Indication: URINARY TRACT INFECTION
     Dosage: FORMULATION: EXTENDED RELEASE
     Route: 065

REACTIONS (2)
  - Alveolitis allergic [Recovered/Resolved]
  - Interstitial lung disease [Recovered/Resolved]
